FAERS Safety Report 13546461 (Version 4)
Quarter: 2022Q1

REPORT INFORMATION
  Report Type: Other
  Country: None (occurrence: CA)
  Receive Date: 20170515
  Receipt Date: 20220105
  Transmission Date: 20220423
  Serious: Yes (Hospitalization, Other)
  Sender: FDA-Public Use
  Company Number: CA-ASCEND THERAPEUTICS-2020753

PATIENT
  Age: 57 Year
  Sex: Female
  Weight: 75 kg

DRUGS (14)
  1. ESTROGEL [Suspect]
     Active Substance: ESTRADIOL
     Indication: Product used for unknown indication
     Route: 065
     Dates: end: 201607
  2. PROMETRIUM [Suspect]
     Active Substance: PROGESTERONE
     Route: 065
     Dates: end: 201607
  3. ACTEMRA [Suspect]
     Active Substance: TOCILIZUMAB
     Route: 042
     Dates: start: 20150727, end: 201609
  4. ACTEMRA [Suspect]
     Active Substance: TOCILIZUMAB
     Route: 042
  5. ACTEMRA [Suspect]
     Active Substance: TOCILIZUMAB
     Route: 042
  6. CELECOXIB [Concomitant]
     Active Substance: CELECOXIB
     Route: 065
  7. LEUCOVORIN CALCIUM(CALCIUM FOLINATE) [Concomitant]
     Route: 065
  8. METHOTREXATE [Concomitant]
     Active Substance: METHOTREXATE
     Route: 065
  9. VITAMIN B12 [Concomitant]
     Active Substance: CYANOCOBALAMIN
     Route: 065
  10. PARACETAMOL;PSEUDOEPHEDRINE HYDROCHLORIDE(PARACETAMOL, PSEUDOEPHEDRINE [Concomitant]
     Route: 065
  11. ESTROGEL [Suspect]
     Active Substance: ESTRADIOL
     Route: 065
     Dates: end: 201607
  12. ACTEMRA [Suspect]
     Active Substance: TOCILIZUMAB
     Route: 042
  13. ACTEMRA [Suspect]
     Active Substance: TOCILIZUMAB
     Route: 042
  14. ACTEMRA [Suspect]
     Active Substance: TOCILIZUMAB
     Route: 042

REACTIONS (14)
  - Blood pressure fluctuation [Unknown]
  - Spinal pain [Unknown]
  - Stress [Unknown]
  - Sinusitis [Recovered/Resolved]
  - Nasopharyngitis [Not Recovered/Not Resolved]
  - Intervertebral disc protrusion [Unknown]
  - Headache [Recovering/Resolving]
  - Headache [Recovered/Resolved]
  - Viral upper respiratory tract infection [Not Recovered/Not Resolved]
  - Abdominal pain lower [Recovered/Resolved]
  - Arthralgia [Unknown]
  - Blood pressure systolic abnormal [Unknown]
  - Blood pressure systolic increased [Unknown]
  - Joint injury [Unknown]

NARRATIVE: CASE EVENT DATE: 20141101
